FAERS Safety Report 11008206 (Version 1)
Quarter: 2015Q2

REPORT INFORMATION
  Report Type: Spontaneous
  Country: PT (occurrence: PT)
  Receive Date: 20150410
  Receipt Date: 20150410
  Transmission Date: 20150821
  Serious: Yes (Hospitalization, Other)
  Sender: FDA-Public Use
  Company Number: PT-BAYER-2015-093908

PATIENT
  Age: 37 Year
  Sex: Female

DRUGS (3)
  1. EPOETIN BETA [Concomitant]
     Active Substance: ERYTHROPOIETIN
     Dosage: UNK
  2. ACETYLSALICYLIC ACID({=100 MG) [Suspect]
     Active Substance: ASPIRIN
     Indication: PROPHYLAXIS
     Dosage: UNK
     Dates: start: 2012
  3. NIFEDIPINE. [Suspect]
     Active Substance: NIFEDIPINE
     Indication: HYPERTENSION
     Dosage: UNK
     Dates: start: 2012

REACTIONS (5)
  - Polyhydramnios [None]
  - Foetal growth restriction [None]
  - Caesarean section [None]
  - Premature delivery [None]
  - Exposure during pregnancy [None]
